FAERS Safety Report 6286694-7 (Version None)
Quarter: 2009Q3

REPORT INFORMATION
  Report Type: 
  Country: None (occurrence: None)
  Receive Date: 20090716
  Receipt Date: 20080729
  Transmission Date: 20100115
  Serious: Yes (Other)
  Sender: FDA-Public Use
  Company Number: 2008BI009318

PATIENT
  Age: 43 Year
  Sex: Female
  Weight: 53.0709 kg

DRUGS (3)
  1. AVONEX [Suspect]
     Indication: MULTIPLE SCLEROSIS
     Dosage: 30 UG;QW;IM
     Route: 030
     Dates: start: 20020401
  2. CON MEDS [Concomitant]
  3. PREV MEDS [Concomitant]

REACTIONS (8)
  - BLINDNESS [None]
  - CONVULSION [None]
  - DECREASED APPETITE [None]
  - DRUG HYPERSENSITIVITY [None]
  - FATIGUE [None]
  - STAPHYLOCOCCAL INFECTION [None]
  - STRESS [None]
  - WEIGHT DECREASED [None]
